FAERS Safety Report 18151509 (Version 32)
Quarter: 2025Q4

REPORT INFORMATION
  Report Type: Report from Study
  Country: US (occurrence: US)
  Receive Date: 20200814
  Receipt Date: 20251229
  Transmission Date: 20260118
  Serious: Yes (Hospitalization, Other)
  Sender: TAKEDA
  Company Number: US-SHIRE-US202025980

PATIENT
  Age: 44 Year
  Sex: Female
  Weight: 84 kg

DRUGS (25)
  1. HUMAN IMMUNOGLOBULIN G [Suspect]
     Active Substance: HUMAN IMMUNOGLOBULIN G
     Indication: Congenital hypogammaglobulinaemia
     Dosage: 60 GRAM, Q3WEEKS
     Dates: start: 20150803
  2. HUMAN IMMUNOGLOBULIN G [Suspect]
     Active Substance: HUMAN IMMUNOGLOBULIN G
     Dosage: 60 GRAM, Q3WEEKS
     Dates: start: 20150915
  3. HUMAN IMMUNOGLOBULIN G [Suspect]
     Active Substance: HUMAN IMMUNOGLOBULIN G
     Dosage: 60 GRAM, Q3WEEKS
  4. EPINEPHRINE [Concomitant]
     Active Substance: EPINEPHRINE
     Dosage: UNK
  5. ACETAMINOPHEN [Concomitant]
     Active Substance: ACETAMINOPHEN
     Dosage: UNK
  6. ZYRTEC [Concomitant]
     Active Substance: CETIRIZINE HYDROCHLORIDE
     Dosage: UNK
  7. AMBIEN [Concomitant]
     Active Substance: ZOLPIDEM TARTRATE
     Dosage: UNK
  8. LEFLUNOMIDE [Concomitant]
     Active Substance: LEFLUNOMIDE
     Dosage: UNK
  9. SODIUM CHLORIDE [Concomitant]
     Active Substance: SODIUM CHLORIDE
     Dosage: UNK
  10. HEPARIN [Concomitant]
     Active Substance: HEPARIN SODIUM
     Dosage: UNK
  11. PANTOPRAZOLE SODIUM [Concomitant]
     Active Substance: PANTOPRAZOLE SODIUM
     Dosage: UNK
  12. DOXYCYCLINE HYCLATE [Concomitant]
     Active Substance: DOXYCYCLINE HYCLATE
     Dosage: UNK
  13. PANTOPRAZOLE [Concomitant]
     Active Substance: PANTOPRAZOLE
  14. DIPHENHYDRAMINE [Concomitant]
     Active Substance: DIPHENHYDRAMINE
     Dosage: UNK
  15. DIPHENHYDRAMINE HYDROCHLORIDE [Concomitant]
     Active Substance: DIPHENHYDRAMINE HYDROCHLORIDE
     Dosage: UNK
  16. GABAPENTIN [Concomitant]
     Active Substance: GABAPENTIN
  17. SODIUM CHLORIDE [Concomitant]
     Active Substance: SODIUM CHLORIDE
     Dosage: UNK
  18. SOLU-MEDROL [Concomitant]
     Active Substance: METHYLPREDNISOLONE SODIUM SUCCINATE
     Dosage: UNK
  19. NAPROXEN [Concomitant]
     Active Substance: NAPROXEN
     Dosage: UNK
  20. LEVOFLOXACIN [Concomitant]
     Active Substance: LEVOFLOXACIN
     Dosage: UNK
  21. VITAMIN D3 [Concomitant]
     Active Substance: CHOLECALCIFEROL
     Dosage: UNK
  22. METHOCARBAMOL [Concomitant]
     Active Substance: METHOCARBAMOL
     Dosage: UNK
  23. MELOXICAM [Concomitant]
     Active Substance: MELOXICAM
     Dosage: UNK
  24. FLONASE ALLERGY RELIEF [Concomitant]
     Active Substance: FLUTICASONE PROPIONATE
     Dosage: UNK
  25. XYZAL [Concomitant]
     Active Substance: LEVOCETIRIZINE DIHYDROCHLORIDE
     Dosage: UNK

REACTIONS (37)
  - Bone neoplasm [Unknown]
  - Cyst rupture [Unknown]
  - Kidney infection [Unknown]
  - Osteomyelitis [Recovering/Resolving]
  - Seizure [Unknown]
  - Sciatica [Unknown]
  - Heat stroke [Unknown]
  - Urinary tract infection [Unknown]
  - COVID-19 [Recovered/Resolved]
  - Eye irritation [Unknown]
  - Procedural pain [Recovering/Resolving]
  - Ear infection [Recovering/Resolving]
  - Iron deficiency anaemia [Unknown]
  - Device infusion issue [Unknown]
  - Weight increased [Unknown]
  - Viral infection [Unknown]
  - Tooth infection [Unknown]
  - Lymph gland infection [Recovering/Resolving]
  - Post procedural infection [Unknown]
  - Dermatitis contact [Recovered/Resolved]
  - Product dose omission issue [Unknown]
  - Weight decreased [Unknown]
  - Poor venous access [Unknown]
  - Sinusitis [Not Recovered/Not Resolved]
  - Ear pain [Unknown]
  - Infusion site urticaria [Unknown]
  - Lymphadenopathy [Unknown]
  - Pain [Recovered/Resolved]
  - Rash [Unknown]
  - Chest pain [Unknown]
  - Muscle spasms [Unknown]
  - Malaise [Recovered/Resolved]
  - Arthralgia [Unknown]
  - Migraine [Unknown]
  - Headache [Recovered/Resolved]
  - Nausea [Recovered/Resolved]
  - Nasopharyngitis [Unknown]

NARRATIVE: CASE EVENT DATE: 20210908
